FAERS Safety Report 4665452-0 (Version None)
Quarter: 2005Q2

REPORT INFORMATION
  Report Type: 
  Country: None (occurrence: None)
  Receive Date: 20050518
  Receipt Date: 20050518
  Transmission Date: 20051028
  Serious: Yes (Hospitalization)
  Sender: FDA-Public Use
  Company Number: None

PATIENT
  Age: 22 Year
  Sex: Female
  Weight: 84 kg

DRUGS (6)
  1. GEFITINIB [Suspect]
     Indication: GLIOBLASTOMA MULTIFORME
     Dosage: 250 MG DAILY
     Dates: start: 20050502, end: 20050509
  2. RAD 001 [Suspect]
     Indication: GLIOBLASTOMA MULTIFORME
     Dosage: 70 MG WEEKLY
     Dates: start: 20050502, end: 20050509
  3. DEPAKOTE [Concomitant]
  4. DAPSONE [Concomitant]
  5. PROTONIX [Concomitant]
  6. DECADRON [Concomitant]

REACTIONS (6)
  - AMMONIA INCREASED [None]
  - CONFUSIONAL STATE [None]
  - CONVULSION [None]
  - DECREASED APPETITE [None]
  - DYSPHAGIA [None]
  - MENTAL STATUS CHANGES [None]
